FAERS Safety Report 9284662 (Version 2)
Quarter: 2013Q2

REPORT INFORMATION
  Report Type: Spontaneous
  Country: DE (occurrence: DE)
  Receive Date: 20130513
  Receipt Date: 20130610
  Transmission Date: 20140414
  Serious: Yes (Hospitalization, Disabling)
  Sender: FDA-Public Use
  Company Number: DE-009507513-1305DEU004487

PATIENT
  Age: 45 Year
  Sex: Male
  Weight: 65 kg

DRUGS (3)
  1. PEGINTRON [Suspect]
     Indication: HEPATITIS C
     Dosage: 100 MICROGRAM, QW
     Route: 058
     Dates: start: 20121018, end: 201211
  2. PEGINTRON [Suspect]
     Dosage: 80 MICROGRAM, QW
     Route: 058
     Dates: start: 20121025, end: 20130228
  3. REBETOL [Suspect]
     Indication: HEPATITIS C
     Dosage: TOTAL DAILY DOSE 1000MG, FREQUENCY 2-0-3
     Route: 048
     Dates: start: 20121025, end: 20130228

REACTIONS (4)
  - Alveolitis [Recovering/Resolving]
  - Hypoxia [Not Recovered/Not Resolved]
  - Influenza like illness [Unknown]
  - Leukopenia [Unknown]
